FAERS Safety Report 8858850 (Version 1)
Quarter: 2012Q4

REPORT INFORMATION
  Report Type: 
  Country: US (occurrence: US)
  Receive Date: 20121024
  Receipt Date: 20121024
  Transmission Date: 20130627
  Serious: No
  Sender: FDA-Public Use
  Company Number: US-PFIZER INC-2012263994

PATIENT

DRUGS (2)
  1. EFFEXOR XR [Suspect]
     Dosage: 250 mg a day
  2. EFFEXOR XR [Suspect]
     Dosage: 37.5 mg a day

REACTIONS (6)
  - Withdrawal syndrome [Unknown]
  - Pain [Unknown]
  - Paraesthesia [Unknown]
  - Arthralgia [Unknown]
  - Dizziness [Unknown]
  - Malaise [Unknown]
